FAERS Safety Report 22082538 (Version 1)
Quarter: 2023Q1

REPORT INFORMATION
  Report Type: Spontaneous
  Country: US (occurrence: None)
  Receive Date: 20230310
  Receipt Date: 20230310
  Transmission Date: 20230417
  Serious: Yes (Hospitalization)
  Sender: FDA-Public Use
  Company Number: 2023A054203

PATIENT
  Age: 25959 Day
  Sex: Female
  Weight: 74.4 kg

DRUGS (1)
  1. FASENRA [Suspect]
     Active Substance: BENRALIZUMAB
     Indication: Asthma
     Route: 058
     Dates: start: 20190226

REACTIONS (2)
  - Gastric cyst [Recovering/Resolving]
  - Spleen disorder [Recovering/Resolving]

NARRATIVE: CASE EVENT DATE: 20230219
